FAERS Safety Report 16795774 (Version 2)
Quarter: 2019Q3

REPORT INFORMATION
  Report Type: Spontaneous
  Country: US (occurrence: US)
  Receive Date: 20190911
  Receipt Date: 20190927
  Transmission Date: 20191005
  Serious: No
  Sender: FDA-Public Use
  Company Number: US-009507513-1909USA002658

PATIENT
  Age: 67 Year
  Sex: Female

DRUGS (3)
  1. METFORMIN [Suspect]
     Active Substance: METFORMIN HYDROCHLORIDE
     Indication: GLYCOSYLATED HAEMOGLOBIN INCREASED
     Dosage: FOUR 500MG/ DAILY
     Route: 048
     Dates: start: 201905, end: 20190828
  2. ATORVASTATIN [Concomitant]
     Active Substance: ATORVASTATIN
  3. PRINIVIL [Suspect]
     Active Substance: LISINOPRIL
     Route: 048

REACTIONS (7)
  - Urine odour abnormal [Recovered/Resolved]
  - Ageusia [Recovered/Resolved]
  - Diarrhoea [Recovered/Resolved]
  - Anosmia [Recovered/Resolved]
  - Fall [Recovered/Resolved]
  - Blood glucose increased [Recovered/Resolved]
  - Weight decreased [Recovered/Resolved]

NARRATIVE: CASE EVENT DATE: 2019
